FAERS Safety Report 22630244 (Version 1)
Quarter: 2023Q2

REPORT INFORMATION
  Report Type: Spontaneous
  Country: US (occurrence: US)
  Receive Date: 20230622
  Receipt Date: 20230622
  Transmission Date: 20230721
  Serious: Yes (Death, Other)
  Sender: FDA-Public Use
  Company Number: US-AMGEN-USASP2023104841

PATIENT
  Sex: Female

DRUGS (2)
  1. BEVACIZUMAB [Suspect]
     Active Substance: BEVACIZUMAB
     Indication: Borderline serous tumour of ovary
     Dosage: UNK
     Route: 065
  2. DOXORUBICIN [Concomitant]
     Active Substance: DOXORUBICIN
     Indication: Borderline serous tumour of ovary
     Dosage: UNK
     Route: 065

REACTIONS (4)
  - Death [Fatal]
  - Borderline serous tumour of ovary [Unknown]
  - Therapy non-responder [Unknown]
  - Off label use [Unknown]
